FAERS Safety Report 9229989 (Version 2)
Quarter: 2013Q2

REPORT INFORMATION
  Report Type: Spontaneous
  Country: JP (occurrence: JP)
  Receive Date: 20130415
  Receipt Date: 20130422
  Transmission Date: 20140414
  Serious: Yes (Life-Threatening)
  Sender: FDA-Public Use
  Company Number: JP-JNJFOC-20130310371

PATIENT
  Age: 73 Year
  Sex: Male

DRUGS (6)
  1. FINIBAX [Suspect]
     Indication: SEPSIS
     Route: 041
     Dates: start: 20130313, end: 20130313
  2. FINIBAX [Suspect]
     Indication: DISSEMINATED INTRAVASCULAR COAGULATION
     Route: 041
     Dates: start: 20130313, end: 20130313
  3. FINIBAX [Suspect]
     Indication: INFECTIVE SPONDYLITIS
     Route: 041
     Dates: start: 20130313, end: 20130313
  4. GLOVENIN-I [Suspect]
     Indication: DISSEMINATED INTRAVASCULAR COAGULATION
     Route: 041
     Dates: start: 20130313, end: 20130313
  5. GLOVENIN-I [Suspect]
     Indication: SEPSIS
     Route: 041
     Dates: start: 20130313, end: 20130313
  6. GLOVENIN-I [Suspect]
     Indication: INFECTIVE SPONDYLITIS
     Route: 041
     Dates: start: 20130313, end: 20130313

REACTIONS (1)
  - Anaphylactic shock [Recovering/Resolving]
